FAERS Safety Report 11392194 (Version 2)
Quarter: 2016Q1

REPORT INFORMATION
  Report Type: Spontaneous
  Country: US (occurrence: US)
  Receive Date: 20150818
  Receipt Date: 20160316
  Transmission Date: 20160525
  Serious: No
  Sender: FDA-Public Use
  Company Number: US-TEVA-587372ACC

PATIENT
  Age: 20 Year
  Sex: Female
  Weight: 70.82 kg

DRUGS (4)
  1. VITAMINS [Concomitant]
     Active Substance: VITAMINS
     Indication: SUPPLEMENTATION THERAPY
  2. PARAGARD T 380A [Suspect]
     Active Substance: COPPER
     Indication: CONTRACEPTION
     Route: 015
     Dates: start: 20140910, end: 20150804
  3. IRON [Concomitant]
     Active Substance: IRON
     Indication: SUPPLEMENTATION THERAPY
  4. PARAGARD T 380A [Suspect]
     Active Substance: COPPER
     Dates: start: 20150908

REACTIONS (3)
  - Amenorrhoea [Unknown]
  - Pelvic pain [Recovered/Resolved]
  - Vaginal haemorrhage [Recovered/Resolved]

NARRATIVE: CASE EVENT DATE: 20150804
